FAERS Safety Report 9111397 (Version 1)
Quarter: 2013Q1

REPORT INFORMATION
  Report Type: Spontaneous
  Country: US (occurrence: US)
  Receive Date: 20130219
  Receipt Date: 20130219
  Transmission Date: 20140127
  Serious: No
  Sender: FDA-Public Use
  Company Number: US-BRISTOL-MYERS SQUIBB COMPANY-16960692

PATIENT
  Age: 76 Year
  Sex: Female
  Weight: 90.7 kg

DRUGS (2)
  1. ORENCIA FOR INJ [Suspect]
     Indication: RHEUMATOID ARTHRITIS
     Dosage: LAST INJECTION WAS ON 11AUG2012
     Route: 058
  2. MACROBID [Concomitant]

REACTIONS (3)
  - Back pain [Unknown]
  - Tinea cruris [Unknown]
  - Influenza [Unknown]
